FAERS Safety Report 9012926 (Version 1)
Quarter: 2013Q1

REPORT INFORMATION
  Report Type: Spontaneous
  Country: US (occurrence: US)
  Receive Date: 20130114
  Receipt Date: 20130114
  Transmission Date: 20140127
  Serious: Yes (Hospitalization)
  Sender: FDA-Public Use
  Company Number: US-GLAXOSMITHKLINE-A0881804A

PATIENT
  Age: 50 Year
  Sex: Male

DRUGS (1)
  1. AVANDIA [Suspect]
     Indication: DIABETES MELLITUS
     Dosage: 2MG PER DAY
     Route: 048
     Dates: start: 2004, end: 2006

REACTIONS (6)
  - Cardiac failure congestive [Not Recovered/Not Resolved]
  - Nephropathy [Unknown]
  - Macular oedema [Unknown]
  - Pneumonia [Unknown]
  - Heart injury [Unknown]
  - Weight increased [Unknown]
